FAERS Safety Report 18894393 (Version 5)
Quarter: 2021Q3

REPORT INFORMATION
  Report Type: Report from Study
  Country: US (occurrence: US)
  Receive Date: 20210215
  Receipt Date: 20210804
  Transmission Date: 20211014
  Serious: Yes (Other)
  Sender: FDA-Public Use
  Company Number: US-HORIZON THERAPEUTICS-HZN-2021-000154

PATIENT

DRUGS (2)
  1. ACTIMMUNE [Suspect]
     Active Substance: INTERFERON GAMMA-1B
     Indication: CHRONIC GRANULOMATOUS DISEASE
     Dosage: 98 UG (0.49ML) ON MONDAYS, WEDNESDAYS, AND FRIDAYS
     Route: 058
     Dates: start: 20210103
  2. ACTIMMUNE [Suspect]
     Active Substance: INTERFERON GAMMA-1B
     Indication: LEUKOCYTOSIS
     Dosage: 55 UG
     Route: 058
     Dates: start: 20201230

REACTIONS (10)
  - Anxiety [Unknown]
  - Influenza like illness [Recovered/Resolved]
  - Liver abscess [Unknown]
  - Pain [Unknown]
  - Product administration error [Unknown]
  - Incorrect dose administered [Unknown]
  - Nervousness [Recovering/Resolving]
  - Injection site pain [Not Recovered/Not Resolved]
  - Injection site haemorrhage [Unknown]
  - Injection site bruising [Unknown]
